FAERS Safety Report 15446403 (Version 1)
Quarter: 2018Q3

REPORT INFORMATION
  Report Type: Spontaneous
  Country: US (occurrence: US)
  Receive Date: 20180925
  Receipt Date: 20180925
  Transmission Date: 20181010
  Serious: No
  Sender: FDA-Public Use
  Company Number: None

PATIENT
  Age: 57 Year
  Sex: Male
  Weight: 74.6 kg

DRUGS (2)
  1. ZOLADEX [Suspect]
     Active Substance: GOSERELIN ACETATE
     Dates: end: 20130531
  2. CASODEX [Suspect]
     Active Substance: BICALUTAMIDE
     Dates: start: 20130619

REACTIONS (1)
  - Stress urinary incontinence [None]

NARRATIVE: CASE EVENT DATE: 20180302
